FAERS Safety Report 8496529-X (Version None)
Quarter: 2012Q3

REPORT INFORMATION
  Report Type: 
  Country: None (occurrence: None)
  Receive Date: 20120709
  Receipt Date: 20120706
  Transmission Date: 20120928
  Serious: No
  Sender: FDA-Public Use
  Company Number: PHHY2012CA050906

PATIENT
  Sex: Male

DRUGS (2)
  1. SANDOSTATIN LAR [Suspect]
     Indication: SMALL INTESTINAL OBSTRUCTION
     Dosage: 20 MG, EVERY 4 WEEKS
     Route: 030
     Dates: start: 20120215
  2. ZYTIGA [Concomitant]

REACTIONS (4)
  - FEELING HOT [None]
  - FATIGUE [None]
  - DYSPNOEA [None]
  - LIVER FUNCTION TEST ABNORMAL [None]
